FAERS Safety Report 21755714 (Version 2)
Quarter: 2022Q4

REPORT INFORMATION
  Report Type: Spontaneous
  Country: US (occurrence: US)
  Receive Date: 20221220
  Receipt Date: 20221228
  Transmission Date: 20230113
  Serious: No
  Sender: FDA-Public Use
  Company Number: US-AMGEN-USASP2022217755

PATIENT
  Sex: Male

DRUGS (14)
  1. ENBREL [Suspect]
     Active Substance: ETANERCEPT
     Indication: Ankylosing spondylitis
     Dosage: 50 MILLIGRAM, QWK
     Route: 058
  2. ALBUTEROL SULFATE [Concomitant]
     Active Substance: ALBUTEROL SULFATE
     Dosage: UNK 108
     Route: 065
  3. ALLOPURINOL [Concomitant]
     Active Substance: ALLOPURINOL
     Dosage: 300 MILLIGRAM
     Route: 065
  4. AMOXICILLIN [Concomitant]
     Active Substance: AMOXICILLIN
     Dosage: 875 MILLIGRAM
     Route: 065
  5. COLCHICINE [Concomitant]
     Active Substance: COLCHICINE
     Dosage: 0.6 MILLIGRAM
     Route: 065
  6. CRESTOR [Concomitant]
     Active Substance: ROSUVASTATIN CALCIUM
     Dosage: 40 MILLIGRAM
     Route: 065
  7. CYCLOBENZAPRINE [Concomitant]
     Active Substance: CYCLOBENZAPRINE
     Dosage: 10 MILLIGRAM
     Route: 065
  8. LOSARTAN POTASSIUM [Concomitant]
     Active Substance: LOSARTAN POTASSIUM
     Dosage: 100 MILLIGRAM
     Route: 065
  9. METOPROLOL SUCCINATE [Concomitant]
     Active Substance: METOPROLOL SUCCINATE
     Dosage: 200 MILLIGRAM
     Route: 065
  10. VITAMINS [Concomitant]
     Active Substance: VITAMINS
     Dosage: UNK
     Route: 065
  11. PREDNISONE [Concomitant]
     Active Substance: PREDNISONE
     Dosage: 50 MILLIGRAM
     Route: 065
  12. SILDENAFIL CITRATE [Concomitant]
     Active Substance: SILDENAFIL CITRATE
     Dosage: 100 MILLIGRAM
     Route: 065
  13. TRAZODONE HCL [Concomitant]
     Active Substance: TRAZODONE HYDROCHLORIDE
     Dosage: 300 MILLIGRAM
     Route: 065
  14. VYZULTA [Concomitant]
     Active Substance: LATANOPROSTENE BUNOD
     Dosage: 0.024 PERCENT
     Route: 065

REACTIONS (1)
  - Therapeutic product effect decreased [Unknown]
